FAERS Safety Report 5281276-8 (Version None)
Quarter: 2007Q1

REPORT INFORMATION
  Report Type: 
  Country: None (occurrence: None)
  Receive Date: 20061218
  Receipt Date: 20060130
  Transmission Date: 20070707
  Serious: Yes (Other)
  Sender: FDA-Public Use
  Company Number: US200601004205

PATIENT
  Sex: Female

DRUGS (2)
  1. HUMULIN L [Suspect]
     Indication: DIABETES MELLITUS
     Dosage: 15 U, 2/D
  2. HUMULIN R [Suspect]
     Indication: DIABETES MELLITUS
     Dosage: 5 U, DAILY (1/D)

REACTIONS (6)
  - BLOOD GLUCOSE DECREASED [None]
  - CONVULSION [None]
  - DIZZINESS [None]
  - FALL [None]
  - PHOBIA [None]
  - WRIST FRACTURE [None]
